FAERS Safety Report 16894532 (Version 2)
Quarter: 2020Q1

REPORT INFORMATION
  Report Type: Spontaneous
  Country: US (occurrence: US)
  Receive Date: 20191008
  Receipt Date: 20200226
  Transmission Date: 20200409
  Serious: Yes (Hospitalization, Other)
  Sender: FDA-Public Use
  Company Number: US-BRISTOL-MYERS SQUIBB COMPANY-BMS-2019-094771

PATIENT
  Age: 71 Year
  Sex: Female
  Weight: 88.5 kg

DRUGS (2)
  1. INSULIN [Concomitant]
     Active Substance: INSULIN NOS
     Indication: DIABETES MELLITUS
     Dosage: UNK
     Route: 065
  2. OPDIVO [Suspect]
     Active Substance: NIVOLUMAB
     Indication: RENAL CELL CARCINOMA
     Dosage: 240 MILLIGRAM, Q2WK
     Route: 065
     Dates: start: 20190823

REACTIONS (7)
  - Liver function test increased [Unknown]
  - Blepharitis [Unknown]
  - Atrioventricular block [Unknown]
  - Myasthenia gravis [Unknown]
  - Aphonia [Unknown]
  - Dyspnoea [Unknown]
  - Myocarditis [Unknown]

NARRATIVE: CASE EVENT DATE: 20190924
